FAERS Safety Report 10240296 (Version 2)
Quarter: 2014Q2

REPORT INFORMATION
  Report Type: Report from Study
  Country: AR (occurrence: AR)
  Receive Date: 20140617
  Receipt Date: 20140623
  Transmission Date: 20141212
  Serious: Yes (Hospitalization)
  Sender: FDA-Public Use
  Company Number: PHHY2014AR073725

PATIENT
  Sex: Female

DRUGS (1)
  1. ONBREZ [Suspect]
     Indication: EMPHYSEMA
     Dosage: 150 UG, DAILY
     Route: 055
     Dates: end: 20131213

REACTIONS (3)
  - Thyroid disorder [Unknown]
  - Choking [Unknown]
  - Cough [Unknown]
